FAERS Safety Report 25004517 (Version 2)
Quarter: 2025Q1

REPORT INFORMATION
  Report Type: Report from Study
  Country: JP (occurrence: JP)
  Receive Date: 20250224
  Receipt Date: 20250303
  Transmission Date: 20250408
  Serious: Yes (Other)
  Sender: RADIUS PHARM
  Company Number: JP-RADIUS HEALTH INC.-2024JP007909

PATIENT
  Age: 77 Year
  Sex: Female

DRUGS (1)
  1. ABALOPARATIDE [Suspect]
     Active Substance: ABALOPARATIDE
     Indication: Osteoporosis
     Route: 058
     Dates: start: 20240903

REACTIONS (12)
  - Musculoskeletal discomfort [Unknown]
  - Palpitations [Recovered/Resolved]
  - Injection site haemorrhage [Unknown]
  - Injection site discolouration [Unknown]
  - Back pain [Not Recovered/Not Resolved]
  - Flank pain [Unknown]
  - Physical deconditioning [Unknown]
  - Gastric ulcer [Recovering/Resolving]
  - Abdominal pain [Not Recovered/Not Resolved]
  - Bone deformity [Unknown]
  - Back pain [Not Recovered/Not Resolved]
  - Arthralgia [Not Recovered/Not Resolved]

NARRATIVE: CASE EVENT DATE: 20240101
